FAERS Safety Report 20170994 (Version 1)
Quarter: 2021Q4

REPORT INFORMATION
  Report Type: Spontaneous
  Country: US (occurrence: US)
  Receive Date: 20211210
  Receipt Date: 20211210
  Transmission Date: 20220303
  Serious: No
  Sender: FDA-Public Use
  Company Number: US-JNJFOC-20211212888

PATIENT
  Age: 34 Year
  Sex: Female

DRUGS (2)
  1. JANSSEN COVID-19 VACCINE [Suspect]
     Active Substance: AD26.COV2.S
     Indication: Immunisation
     Route: 065
  2. SIMPONI [Suspect]
     Active Substance: GOLIMUMAB
     Indication: Product used for unknown indication
     Dosage: 50/0.5ML
     Route: 058
     Dates: start: 201908

REACTIONS (1)
  - Illness [Unknown]

NARRATIVE: CASE EVENT DATE: 20211201
